FAERS Safety Report 15741981 (Version 1)
Quarter: 2018Q4

REPORT INFORMATION
  Report Type: Spontaneous
  Country: GR (occurrence: GR)
  Receive Date: 20181219
  Receipt Date: 20181219
  Transmission Date: 20190205
  Serious: Yes (Hospitalization)
  Sender: FDA-Public Use
  Company Number: GR-ELI_LILLY_AND_COMPANY-GR201812007969

PATIENT
  Age: 59 Year
  Sex: Female

DRUGS (7)
  1. CORTISONE [Suspect]
     Active Substance: CORTISONE\HYDROCORTISONE
     Indication: COUGH
     Dosage: UNK, UNKNOWN
     Route: 055
     Dates: start: 201808
  2. LADOSE [Suspect]
     Active Substance: FLUOXETINE HYDROCHLORIDE
     Indication: DEPRESSION
     Dosage: UNK, UNKNOWN
     Route: 048
     Dates: start: 2013, end: 2013
  3. LADOSE [Suspect]
     Active Substance: FLUOXETINE HYDROCHLORIDE
     Dosage: 20 MG, TID
     Route: 048
     Dates: start: 201803, end: 201808
  4. LADOSE [Suspect]
     Active Substance: FLUOXETINE HYDROCHLORIDE
     Dosage: 20 MG, DAILY
     Route: 048
     Dates: start: 201812
  5. T4 [Concomitant]
     Active Substance: LEVOTHYROXINE
     Indication: THYROID DISORDER
     Dosage: 75 MG, UNKNOWN
     Route: 065
  6. LADOSE [Suspect]
     Active Substance: FLUOXETINE HYDROCHLORIDE
     Dosage: 20 MG, BID
     Route: 048
     Dates: start: 201808, end: 201812
  7. CONTROLOC [PANTOPRAZOLE] [Concomitant]
     Indication: GASTRIC DISORDER
     Dosage: 40 MG, UNKNOWN
     Route: 065

REACTIONS (7)
  - Pulmonary embolism [Recovered/Resolved]
  - Cough [Unknown]
  - Blood sodium decreased [Unknown]
  - Heart rate increased [Recovered/Resolved]
  - Bradycardia [Unknown]
  - Deep vein thrombosis [Unknown]
  - Mouth haemorrhage [Unknown]

NARRATIVE: CASE EVENT DATE: 201808
